FAERS Safety Report 5878390-2 (Version None)
Quarter: 2008Q3

REPORT INFORMATION
  Report Type: 
  Country: None (occurrence: None)
  Receive Date: 20080911
  Receipt Date: 20080903
  Transmission Date: 20090109
  Serious: Yes (Other)
  Sender: FDA-Public Use
  Company Number: US-PFIZER INC-2008061048

PATIENT
  Sex: Female
  Weight: 64.09 kg

DRUGS (13)
  1. XALATAN [Suspect]
     Indication: GLAUCOMA
     Dates: start: 20080301
  2. CAPTOPRIL [Concomitant]
  3. LOVASTATIN [Concomitant]
  4. PRILOSEC [Concomitant]
  5. VITAMIN TAB [Concomitant]
  6. LUTEIN [Concomitant]
  7. ASCORBIC ACID [Concomitant]
  8. ACETYLSALICYLIC ACID SRT [Concomitant]
  9. ARGININE [Concomitant]
  10. STOOL SOFTENER [Concomitant]
  11. FOLIC ACID [Concomitant]
  12. OMEPRAZOLE [Concomitant]
  13. HYDROCHLOROTHIAZIDE [Concomitant]

REACTIONS (12)
  - ANGIOEDEMA [None]
  - ATOPY [None]
  - CHAPPED LIPS [None]
  - DRY SKIN [None]
  - ERYTHEMA [None]
  - FOOD INTOLERANCE [None]
  - HYPERSENSITIVITY [None]
  - HYPOAESTHESIA ORAL [None]
  - LIP DRY [None]
  - LIP SWELLING [None]
  - NEURALGIA [None]
  - PARAESTHESIA [None]
